FAERS Safety Report 5297851-0 (Version None)
Quarter: 2007Q2

REPORT INFORMATION
  Report Type: 
  Country: None (occurrence: None)
  Receive Date: 20070413
  Receipt Date: 20070413
  Transmission Date: 20071010
  Serious: Yes (Hospitalization)
  Sender: FDA-Public Use
  Company Number: None

PATIENT
  Sex: Female
  Weight: 66.2 kg

DRUGS (3)
  1. DAUNORUBICIN HCL [Suspect]
     Dosage: 318 MG
  2. CYTARABINE [Suspect]
     Dosage: 885 MG
  3. ETOPOSIDE [Suspect]
     Dosage: 354 MG

REACTIONS (6)
  - CARDIAC FAILURE CONGESTIVE [None]
  - DIZZINESS [None]
  - DYSPNOEA [None]
  - HEART RATE INCREASED [None]
  - HYPOTENSION [None]
  - VENTRICULAR DYSFUNCTION [None]
